FAERS Safety Report 7827502-X (Version None)
Quarter: 2011Q4

REPORT INFORMATION
  Report Type: 
  Country: None (occurrence: None)
  Receive Date: 20111020
  Receipt Date: 20111018
  Transmission Date: 20120403
  Serious: Yes (Other)
  Sender: FDA-Public Use
  Company Number: HU-ROCHE-1005485

PATIENT
  Age: 57 Year
  Sex: Female

DRUGS (12)
  1. ZOMETA [Suspect]
     Indication: BREAST CANCER METASTATIC
     Dosage: 4 MG QMO
     Route: 041
     Dates: start: 20110301, end: 20110801
  2. LEVOTHYROXINE SODIUM [Concomitant]
  3. VEROSPIRON [Concomitant]
  4. AMLODIPINE BESYLATE [Concomitant]
  5. MODUXIN [Concomitant]
  6. AVASTIN [Suspect]
     Indication: PRODUCT USED FOR UNKNOWN INDICATION
     Route: 065
     Dates: start: 20101208
  7. BISOBLOC [Concomitant]
  8. FUROSEMIDE [Concomitant]
  9. BRINALDIX [Concomitant]
  10. CLODRONIC ACID [Concomitant]
     Dates: start: 20101130, end: 20101221
  11. PACLITAXEL [Concomitant]
     Dates: start: 20101208
  12. LETROZOLE [Concomitant]
     Dates: start: 20090731, end: 20100901

REACTIONS (1)
  - OSTEONECROSIS OF JAW [None]
